FAERS Safety Report 5378167-0 (Version None)
Quarter: 2007Q3

REPORT INFORMATION
  Report Type: 
  Country: None (occurrence: None)
  Receive Date: 20070705
  Receipt Date: 20070627
  Transmission Date: 20080115
  Serious: Yes (Other)
  Sender: FDA-Public Use
  Company Number: PHBS2006JP12916

PATIENT
  Age: 75 Year
  Sex: Male

DRUGS (2)
  1. AREDIA [Suspect]
     Indication: METASTASES TO BONE
     Route: 042
     Dates: end: 20051101
  2. AREDIA [Suspect]
     Dosage: ONCE EVERY 3 OR 4 WEEKS
     Route: 042
     Dates: end: 20051101

REACTIONS (5)
  - BIOPSY SKIN ABNORMAL [None]
  - GASTRIC CANCER [None]
  - INDURATION [None]
  - METASTASES TO SKIN [None]
  - SUBCUTANEOUS NODULE [None]
